FAERS Safety Report 8451064-X (Version None)
Quarter: 2012Q2

REPORT INFORMATION
  Report Type: 
  Country: None (occurrence: None)
  Receive Date: 20120613
  Receipt Date: 20120604
  Transmission Date: 20120825
  Serious: Yes (Other)
  Sender: FDA-Public Use
  Company Number: 2012SP029973

PATIENT
  Age: 44 Year
  Sex: Male

DRUGS (8)
  1. RIBAVIRIN [Suspect]
     Indication: PRODUCT USED FOR UNKNOWN INDICATION
  2. ABILIFY [Concomitant]
  3. REMERON [Concomitant]
  4. PERCOCET [Concomitant]
  5. PEGASYS [Suspect]
     Indication: PRODUCT USED FOR UNKNOWN INDICATION
  6. VICTRELIS [Suspect]
     Indication: PRODUCT USED FOR UNKNOWN INDICATION
     Dosage: 800 MG;TID;PO
     Route: 048
     Dates: start: 20111201
  7. TRAZODONE HCL [Concomitant]
  8. OXYCONTIN [Concomitant]

REACTIONS (2)
  - DYSPNOEA [None]
  - FOREIGN BODY [None]
